FAERS Safety Report 9835366 (Version 1)
Quarter: 2014Q1

REPORT INFORMATION
  Report Type: Spontaneous
  Country: US (occurrence: US)
  Receive Date: 20140122
  Receipt Date: 20140122
  Transmission Date: 20141002
  Serious: No
  Sender: FDA-Public Use
  Company Number: US-BRISTOL-MYERS SQUIBB COMPANY-19509124

PATIENT
  Age: 66 Year
  Sex: Female
  Weight: 76.19 kg

DRUGS (9)
  1. ELIQUIS [Suspect]
     Indication: CEREBROVASCULAR ACCIDENT
     Route: 048
     Dates: start: 20130805
  2. ELIQUIS [Suspect]
     Indication: TRANSIENT ISCHAEMIC ATTACK
     Route: 048
     Dates: start: 20130805
  3. ASPIRIN [Concomitant]
  4. ZOCOR [Concomitant]
  5. LISINOPRIL [Concomitant]
  6. PROZAC [Concomitant]
  7. PRILOSEC [Concomitant]
  8. FOLVITE [Concomitant]
  9. RESTORIL [Concomitant]

REACTIONS (1)
  - Tooth disorder [Unknown]
